FAERS Safety Report 6034046-7 (Version None)
Quarter: 2009Q1

REPORT INFORMATION
  Report Type: 
  Country: None (occurrence: None)
  Receive Date: 20090112
  Receipt Date: 20081230
  Transmission Date: 20090719
  Serious: Yes (Hospitalization)
  Sender: FDA-Public Use
  Company Number: US-BIOGENIDEC-2006BI015991

PATIENT
  Age: 58 Year
  Sex: Female
  Weight: 58 kg

DRUGS (14)
  1. TYSABRI [Suspect]
     Indication: MULTIPLE SCLEROSIS
     Route: 042
     Dates: start: 20061010
  2. AVONEX [Concomitant]
     Indication: MULTIPLE SCLEROSIS
     Route: 030
     Dates: start: 19960601
  3. ZOLOFT [Concomitant]
  4. OXYBUTYNIN CHLORIDE [Concomitant]
  5. TRAMADOL HCL [Concomitant]
  6. ADVAIR DISKUS 100/50 [Concomitant]
  7. FLOVENT [Concomitant]
  8. TRAZODONE HCL [Concomitant]
  9. LORTAB [Concomitant]
  10. PHENERGAN HCL [Concomitant]
  11. RESTORIL [Concomitant]
  12. ATROVENT [Concomitant]
  13. COREG CR [Concomitant]
     Indication: CARDIAC FAILURE CONGESTIVE
  14. RYTHMOL [Concomitant]
     Indication: CARDIAC FAILURE CONGESTIVE

REACTIONS (12)
  - BRONCHITIS [None]
  - CARDIAC FAILURE CONGESTIVE [None]
  - CATARACT [None]
  - CHEST PAIN [None]
  - COGNITIVE DISORDER [None]
  - DIZZINESS [None]
  - EJECTION FRACTION DECREASED [None]
  - GAIT DISTURBANCE [None]
  - GLAUCOMA [None]
  - HAEMORRHAGE [None]
  - OPTIC NERVE INJURY [None]
  - VISION BLURRED [None]
